FAERS Safety Report 17903735 (Version 1)
Quarter: 2020Q2

REPORT INFORMATION
  Report Type: Spontaneous
  Country: NZ (occurrence: NZ)
  Receive Date: 20200616
  Receipt Date: 20200616
  Transmission Date: 20200714
  Serious: Yes (Death, Hospitalization, Other)
  Sender: FDA-Public Use
  Company Number: NZ-MYLANLABS-2016M1033102

PATIENT
  Age: 38 Year
  Sex: Male
  Weight: 119 kg

DRUGS (9)
  1. CLOZARIL [Suspect]
     Active Substance: CLOZAPINE
     Dosage: 450 MG, QD
     Route: 048
  2. CLOZARIL [Suspect]
     Active Substance: CLOZAPINE
     Dosage: UNK
     Route: 048
     Dates: start: 20080617
  3. CLOPINE [Suspect]
     Active Substance: CLOZAPINE
     Indication: SCHIZOPHRENIA
     Dosage: UNK
  4. CLOPINE [Suspect]
     Active Substance: CLOZAPINE
     Dosage: 350 MG, QD
     Dates: start: 2015
  5. CLOZARIL [Suspect]
     Active Substance: CLOZAPINE
     Dosage: 350 MG, PM
     Route: 048
     Dates: start: 2005
  6. CLOZARIL [Suspect]
     Active Substance: CLOZAPINE
     Dosage: 400 MG, QD
     Route: 048
     Dates: start: 2009
  7. CLOZARIL [Suspect]
     Active Substance: CLOZAPINE
     Indication: PSYCHOTIC DISORDER
     Dosage: 500 MG, UNK
     Route: 048
  8. OLANZAPINE. [Concomitant]
     Active Substance: OLANZAPINE
     Indication: PRODUCT USED FOR UNKNOWN INDICATION
     Dosage: UNK
  9. CLOZARIL [Suspect]
     Active Substance: CLOZAPINE
     Indication: SCHIZOPHRENIA
     Dosage: UNK
     Route: 048
     Dates: start: 1999

REACTIONS (17)
  - Schizophrenia [Unknown]
  - Malaise [Unknown]
  - Megacolon [Fatal]
  - Bacterial toxaemia [Fatal]
  - Discoloured vomit [Unknown]
  - Vomiting [Unknown]
  - Electrolyte imbalance [Unknown]
  - Dizziness [Unknown]
  - Pallor [Unknown]
  - Gastrointestinal hypomotility [Fatal]
  - Decreased appetite [Unknown]
  - Ileus paralytic [Fatal]
  - Treatment noncompliance [Unknown]
  - Antipsychotic drug level above therapeutic [Recovering/Resolving]
  - Vertigo [Unknown]
  - Gastrointestinal motility disorder [Fatal]
  - Psychotic disorder [Unknown]

NARRATIVE: CASE EVENT DATE: 2015
